FAERS Safety Report 26022513 (Version 2)
Quarter: 2025Q4

REPORT INFORMATION
  Report Type: Report from Study
  Country: US (occurrence: US)
  Receive Date: 20251110
  Receipt Date: 20251214
  Transmission Date: 20260118
  Serious: Yes (Other)
  Sender: ALEXION PHARMACEUTICALS
  Company Number: US-AstraZeneca-CH-00987447A

PATIENT
  Sex: Male

DRUGS (2)
  1. OSIMERTINIB [Suspect]
     Active Substance: OSIMERTINIB
     Indication: Lung neoplasm malignant
     Dosage: 80 MILLIGRAM, QD
     Route: 061
  2. IMODIUM [Concomitant]
     Active Substance: LOPERAMIDE HYDROCHLORIDE
     Route: 065

REACTIONS (9)
  - Diarrhoea [Unknown]
  - Joint swelling [Unknown]
  - Dyspnoea [Unknown]
  - Epistaxis [Unknown]
  - Cardiac disorder [Unknown]
  - Macular degeneration [Unknown]
  - Weight decreased [Unknown]
  - Nasal congestion [Unknown]
  - Product dose omission issue [Unknown]
